FAERS Safety Report 11090183 (Version 1)
Quarter: 2015Q2

REPORT INFORMATION
  Report Type: Spontaneous
  Country: BR (occurrence: BR)
  Receive Date: 20150505
  Receipt Date: 20150505
  Transmission Date: 20150821
  Serious: Yes (Hospitalization)
  Sender: FDA-Public Use
  Company Number: BR-PFIZER INC-2015147634

PATIENT
  Age: 63 Year
  Sex: Female
  Weight: 68 kg

DRUGS (3)
  1. XALATAN [Suspect]
     Active Substance: LATANOPROST
     Dosage: UNK
     Route: 047
     Dates: start: 201504
  2. PANTOPRAZOLE [Concomitant]
     Active Substance: PANTOPRAZOLE SODIUM
     Indication: REFLUX GASTRITIS
     Dosage: 1 TABLET (UNSPECIFIED DOSE), DAILY
     Dates: start: 2011
  3. XALATAN [Suspect]
     Active Substance: LATANOPROST
     Indication: GLAUCOMA
     Dosage: ONE DROP EACH EYE (3 ?G), 1X/DAY (AT NIGHT)
     Route: 047
     Dates: start: 2007, end: 2011

REACTIONS (2)
  - Disease progression [Unknown]
  - Cataract [Unknown]

NARRATIVE: CASE EVENT DATE: 2012
